FAERS Safety Report 6676860-0 (Version None)
Quarter: 2010Q2

REPORT INFORMATION
  Report Type: 
  Country: None (occurrence: None)
  Receive Date: 20100409
  Receipt Date: 20100409
  Transmission Date: 20101027
  Serious: Yes (Hospitalization)
  Sender: FDA-Public Use
  Company Number: None

PATIENT
  Sex: Male
  Weight: 79.8331 kg

DRUGS (2)
  1. PLAVIX [Suspect]
     Indication: MYOCARDIAL INFARCTION
     Dosage: 75 MGS DAILY ORAL
     Route: 048
     Dates: start: 20091020
  2. PLAVIX [Suspect]
     Indication: MYOCARDIAL INFARCTION
     Dosage: 75 MGS DAILY ORAL
     Route: 048
     Dates: start: 20100318

REACTIONS (2)
  - DRUG RESISTANCE [None]
  - MYOCARDIAL INFARCTION [None]
